FAERS Safety Report 8017214-4 (Version None)
Quarter: 2012Q1

REPORT INFORMATION
  Report Type: 
  Country: None (occurrence: None)
  Receive Date: 20120102
  Receipt Date: 20111222
  Transmission Date: 20120608
  Serious: Yes (Hospitalization, Other)
  Sender: FDA-Public Use
  Company Number: PHFR2011IE05119

PATIENT
  Sex: Female

DRUGS (2)
  1. CLOZARIL [Suspect]
     Dosage: 325 MG, UNK
  2. CLOZARIL [Suspect]
     Indication: SCHIZOPHRENIA
     Route: 048
     Dates: start: 20040311

REACTIONS (5)
  - NAUSEA [None]
  - WHITE BLOOD CELL COUNT INCREASED [None]
  - RECTAL HAEMORRHAGE [None]
  - MALAISE [None]
  - NEUTROPHIL COUNT INCREASED [None]
